FAERS Safety Report 21519342 (Version 1)
Quarter: 2022Q4

REPORT INFORMATION
  Report Type: Spontaneous
  Country: CN (occurrence: CN)
  Receive Date: 20221028
  Receipt Date: 20221028
  Transmission Date: 20230113
  Serious: Yes (Hospitalization)
  Sender: FDA-Public Use
  Company Number: CN-ELI_LILLY_AND_COMPANY-CN202210008213

PATIENT
  Age: 78 Year
  Sex: Male
  Weight: 75 kg

DRUGS (4)
  1. GEMCITABINE HYDROCHLORIDE [Suspect]
     Active Substance: GEMCITABINE HYDROCHLORIDE
     Indication: Non-Hodgkin^s lymphoma
     Dosage: 800 MG, OTHER, 1 TIME , SINGLE DOSAGE
     Route: 042
     Dates: start: 20220930, end: 20221001
  2. ELOXATIN [Suspect]
     Active Substance: OXALIPLATIN
     Indication: Non-Hodgkin^s lymphoma
     Dosage: 100 MG, OTHER, 1 TIME , SINGLE DOSAGE
     Route: 042
     Dates: start: 20220930, end: 20220930
  3. DEXTROSE [Concomitant]
     Active Substance: DEXTROSE
     Indication: Non-Hodgkin^s lymphoma
     Dosage: 250 ML
     Route: 042
     Dates: start: 20220930, end: 20220930
  4. SODIUM CHLORIDE [Concomitant]
     Active Substance: SODIUM CHLORIDE
     Indication: Non-Hodgkin^s lymphoma
     Dosage: 100 ML
     Route: 042
     Dates: start: 20220930, end: 20220930

REACTIONS (2)
  - Phlebitis [Recovered/Resolved]
  - Off label use [Unknown]

NARRATIVE: CASE EVENT DATE: 20221003
